FAERS Safety Report 25825528 (Version 1)
Quarter: 2025Q3

REPORT INFORMATION
  Report Type: Spontaneous
  Country: EU (occurrence: EU)
  Receive Date: 20250919
  Receipt Date: 20250919
  Transmission Date: 20251021
  Serious: Yes (Life-Threatening, Other)
  Sender: MYLAN
  Company Number: None

PATIENT
  Age: 72 Year
  Sex: Male
  Weight: 99 kg

DRUGS (28)
  1. PACLITAXEL [Suspect]
     Active Substance: PACLITAXEL
     Indication: Squamous cell carcinoma of lung
  2. PACLITAXEL [Suspect]
     Active Substance: PACLITAXEL
     Route: 042
  3. PACLITAXEL [Suspect]
     Active Substance: PACLITAXEL
     Route: 042
  4. PACLITAXEL [Suspect]
     Active Substance: PACLITAXEL
  5. CARBOPLATIN [Suspect]
     Active Substance: CARBOPLATIN
     Indication: Squamous cell carcinoma of lung
  6. CARBOPLATIN [Suspect]
     Active Substance: CARBOPLATIN
     Route: 042
  7. CARBOPLATIN [Suspect]
     Active Substance: CARBOPLATIN
     Route: 042
  8. CARBOPLATIN [Suspect]
     Active Substance: CARBOPLATIN
  9. ESCITALOPRAM [Suspect]
     Active Substance: ESCITALOPRAM OXALATE
     Indication: Product used for unknown indication
  10. ESCITALOPRAM [Suspect]
     Active Substance: ESCITALOPRAM OXALATE
     Route: 065
  11. ESCITALOPRAM [Suspect]
     Active Substance: ESCITALOPRAM OXALATE
     Route: 065
  12. ESCITALOPRAM [Suspect]
     Active Substance: ESCITALOPRAM OXALATE
  13. OPDIVO [Suspect]
     Active Substance: NIVOLUMAB
     Indication: Squamous cell carcinoma of lung
  14. OPDIVO [Suspect]
     Active Substance: NIVOLUMAB
     Route: 042
  15. OPDIVO [Suspect]
     Active Substance: NIVOLUMAB
     Route: 042
  16. OPDIVO [Suspect]
     Active Substance: NIVOLUMAB
  17. IRBESARTAN [Concomitant]
     Active Substance: IRBESARTAN
  18. IRBESARTAN [Concomitant]
     Active Substance: IRBESARTAN
     Route: 065
  19. IRBESARTAN [Concomitant]
     Active Substance: IRBESARTAN
     Route: 065
  20. IRBESARTAN [Concomitant]
     Active Substance: IRBESARTAN
  21. RHINOCORT [Concomitant]
     Active Substance: BUDESONIDE
  22. RHINOCORT [Concomitant]
     Active Substance: BUDESONIDE
     Route: 065
  23. RHINOCORT [Concomitant]
     Active Substance: BUDESONIDE
     Route: 065
  24. RHINOCORT [Concomitant]
     Active Substance: BUDESONIDE
  25. TIAPROFENIC ACID [Concomitant]
     Active Substance: TIAPROFENIC ACID
  26. TIAPROFENIC ACID [Concomitant]
     Active Substance: TIAPROFENIC ACID
     Route: 065
  27. TIAPROFENIC ACID [Concomitant]
     Active Substance: TIAPROFENIC ACID
     Route: 065
  28. TIAPROFENIC ACID [Concomitant]
     Active Substance: TIAPROFENIC ACID

REACTIONS (3)
  - Hyponatraemia [Recovering/Resolving]
  - Acute kidney injury [Recovering/Resolving]
  - Rash [Recovered/Resolved]

NARRATIVE: CASE EVENT DATE: 20250731
